FAERS Safety Report 4298448-1 (Version None)
Quarter: 2004Q1

REPORT INFORMATION
  Report Type: 
  Country: None (occurrence: None)
  Receive Date: 20040218
  Receipt Date: 20030730
  Transmission Date: 20041129
  Serious: Yes (Other)
  Sender: FDA-Public Use
  Company Number: US-BRISTOL-MYERS SQUIBB COMPANY-12343240

PATIENT
  Age: 41 Year
  Sex: Male

DRUGS (11)
  1. STADOL [Suspect]
     Route: 045
  2. TALWIN [Concomitant]
  3. LORCET-HD [Concomitant]
  4. PROZAC [Concomitant]
  5. BUSPAR [Concomitant]
  6. MECLIZINE [Concomitant]
  7. LORCET-HD [Concomitant]
  8. ROXILOX [Concomitant]
  9. PROMETHAZINE [Concomitant]
  10. ORPHENADRINE HYDROCHLORIDE FILM TAB [Concomitant]
  11. OXYCODONE HCL + ACETAMINOPHEN [Concomitant]

REACTIONS (1)
  - DEPENDENCE [None]
